FAERS Safety Report 7055735-1 (Version None)
Quarter: 2010Q4

REPORT INFORMATION
  Report Type: 
  Country: None (occurrence: None)
  Receive Date: 20101021
  Receipt Date: 20101007
  Transmission Date: 20110411
  Serious: Yes (Death)
  Sender: FDA-Public Use
  Company Number: NL-ROCHE-731947

PATIENT
  Age: 5 Year
  Sex: Male

DRUGS (1)
  1. OSELTAMIVIR [Suspect]
     Route: 065

REACTIONS (1)
  - DEATH [None]
